FAERS Safety Report 13176951 (Version 1)
Quarter: 2017Q1

REPORT INFORMATION
  Report Type: Report from Study
  Country: US (occurrence: US)
  Receive Date: 20170201
  Receipt Date: 20170201
  Transmission Date: 20170428
  Serious: No
  Sender: FDA-Public Use
  Company Number: US-EXELIXIS-CABO-16006749

PATIENT
  Sex: Male

DRUGS (3)
  1. CLARINEX [Concomitant]
     Active Substance: DESLORATADINE
  2. CABOMETYX [Suspect]
     Active Substance: CABOZANTINIB S-MALATE
     Indication: RENAL CANCER
     Dosage: 60 MG, QD
     Route: 048
     Dates: start: 20160628, end: 201608
  3. PRILOSEC [Concomitant]
     Active Substance: OMEPRAZOLE MAGNESIUM

REACTIONS (6)
  - Pyrexia [Unknown]
  - Rash [Unknown]
  - Hair colour changes [Unknown]
  - Acne [Not Recovered/Not Resolved]
  - Skin exfoliation [Unknown]
  - Fatigue [Not Recovered/Not Resolved]
